FAERS Safety Report 4840040-1 (Version None)
Quarter: 2005Q4

REPORT INFORMATION
  Report Type: 
  Country: None (occurrence: None)
  Receive Date: 20051125
  Receipt Date: 20051108
  Transmission Date: 20060501
  Serious: Yes (Hospitalization)
  Sender: FDA-Public Use
  Company Number: IE-2005-023527

PATIENT
  Age: 46 Year
  Sex: Male

DRUGS (1)
  1. BETASERON [Suspect]
     Dosage: SUBCUTANEOUS
     Route: 058
     Dates: start: 20010109, end: 20051001

REACTIONS (1)
  - NECROTISING FASCIITIS STREPTOCOCCAL [None]
